FAERS Safety Report 21622981 (Version 1)
Quarter: 2022Q4

REPORT INFORMATION
  Report Type: Spontaneous
  Country: US (occurrence: US)
  Receive Date: 20221121
  Receipt Date: 20221121
  Transmission Date: 20230112
  Serious: No
  Sender: FDA-Public Use
  Company Number: US-SA-SAC20221115000142

PATIENT
  Sex: Female

DRUGS (11)
  1. DUPIXENT [Suspect]
     Active Substance: DUPILUMAB
     Indication: Dermatitis atopic
     Dosage: 300 MG, QOW
     Route: 058
     Dates: start: 20210512
  2. ATORVASTATIN [Concomitant]
     Active Substance: ATORVASTATIN
  3. DESONIDE [Concomitant]
     Active Substance: DESONIDE
  4. MONTELUKAST [Concomitant]
     Active Substance: MONTELUKAST SODIUM
  5. PREDNISONE [Concomitant]
     Active Substance: PREDNISONE
  6. PREMARIN [Concomitant]
     Active Substance: ESTROGENS, CONJUGATED
  7. PROLIA [Concomitant]
     Active Substance: DENOSUMAB
  8. METHPRED [METHYLPREDNISOLONE] [Concomitant]
  9. VALACYCLOVIR [Concomitant]
     Active Substance: VALACYCLOVIR HYDROCHLORIDE
  10. ZETIA [Concomitant]
     Active Substance: EZETIMIBE
  11. COENZYME Q10 [Concomitant]
     Active Substance: DIETARY SUPPLEMENT\UBIDECARENONE

REACTIONS (1)
  - Dermatitis atopic [Unknown]
